APPROVED DRUG PRODUCT: ACARBOSE
Active Ingredient: ACARBOSE
Strength: 100MG
Dosage Form/Route: TABLET;ORAL
Application: A090912 | Product #003 | TE Code: AB
Applicant: STRIDES PHARMA GLOBAL PTE LTD
Approved: Jul 27, 2011 | RLD: No | RS: No | Type: RX